FAERS Safety Report 12519311 (Version 1)
Quarter: 2016Q2

REPORT INFORMATION
  Report Type: Spontaneous
  Country: BR (occurrence: BR)
  Receive Date: 20160630
  Receipt Date: 20160630
  Transmission Date: 20160815
  Serious: Yes (Other)
  Sender: FDA-Public Use
  Company Number: BR-PFIZER INC-2016322532

PATIENT
  Sex: Male

DRUGS (1)
  1. FRONTAL [Suspect]
     Active Substance: ALPRAZOLAM
     Indication: EMOTIONAL DISORDER

REACTIONS (3)
  - Malaise [Unknown]
  - Diabetes mellitus [Unknown]
  - Blood pressure increased [Unknown]
